FAERS Safety Report 5734163-2 (Version None)
Quarter: 2008Q2

REPORT INFORMATION
  Report Type: 
  Country: None (occurrence: None)
  Receive Date: 20080509
  Receipt Date: 20070331
  Transmission Date: 20081010
  Serious: Yes (Hospitalization)
  Sender: FDA-Public Use
  Company Number: US-GENENTECH-260761

PATIENT
  Age: 71 Year
  Sex: Male

DRUGS (4)
  1. BEVACIZUMAB [Suspect]
     Indication: PANCREATIC CARCINOMA
     Dosage: 5 MG/KG, Q2W
     Route: 042
     Dates: start: 20061012
  2. BEVACIZUMAB [Suspect]
     Dosage: 10 MG/KG, UNK
  3. XELODA [Suspect]
     Indication: PANCREATIC CARCINOMA
     Dosage: 825 MG/M2, BID
     Route: 048
     Dates: start: 20061101
  4. GEMCITABINE [Suspect]
     Indication: PANCREATIC CARCINOMA
     Dosage: 1000 MG/M2, UNK
     Route: 042
     Dates: start: 20061012

REACTIONS (2)
  - ABDOMINAL PAIN [None]
  - PYREXIA [None]
